FAERS Safety Report 7510489-7 (Version None)
Quarter: 2011Q2

REPORT INFORMATION
  Report Type: 
  Country: None (occurrence: None)
  Receive Date: 20110529
  Receipt Date: 20110523
  Transmission Date: 20111010
  Serious: Yes (Other)
  Sender: FDA-Public Use
  Company Number: PHHY2010BR88684

PATIENT
  Sex: Male

DRUGS (1)
  1. FORMOTEROL FUMARATE [Suspect]

REACTIONS (2)
  - TEMPORAL LOBE EPILEPSY [None]
  - CONFUSIONAL STATE [None]
